FAERS Safety Report 8982217 (Version 1)
Quarter: 2012Q4

REPORT INFORMATION
  Report Type: 
  Country: US (occurrence: US)
  Receive Date: 20121222
  Receipt Date: 20121222
  Transmission Date: 20130627
  Serious: No
  Sender: FDA-Public Use
  Company Number: US-ASTRAZENECA-2012SE89396

PATIENT
  Age: 64 Year
  Sex: Female
  Weight: 87.1 kg

DRUGS (11)
  1. RHINOCORT AQUA [Suspect]
     Indication: MULTIPLE ALLERGIES
     Route: 045
  2. RHINOCORT AQUA [Suspect]
     Indication: MULTIPLE ALLERGIES
     Dosage: 32 mcg, Two spray Daily.
     Route: 045
     Dates: start: 201110
  3. FLONASE [Suspect]
     Route: 065
  4. FLONASE [Suspect]
     Dosage: GENERIC
     Route: 065
     Dates: start: 201210
  5. ADVAIR [Concomitant]
     Indication: ASTHMA
  6. COMBIVENT [Concomitant]
     Indication: ASTHMA
  7. AMLODIPINE [Concomitant]
  8. BUPROPIONE HLX [Concomitant]
     Indication: ANXIETY
  9. FOSINOPRIL [Concomitant]
     Indication: HYPERTENSION
  10. ZYRTEC [Concomitant]
     Indication: MULTIPLE ALLERGIES
  11. SYNTHROID [Concomitant]
     Indication: HYPOTHYROIDISM

REACTIONS (2)
  - Condition aggravated [Unknown]
  - Off label use [Unknown]
